FAERS Safety Report 5528041-1 (Version None)
Quarter: 2007Q4

REPORT INFORMATION
  Report Type: 
  Country: None (occurrence: None)
  Receive Date: 20071128
  Receipt Date: 20071119
  Transmission Date: 20080405
  Serious: Yes (Hospitalization)
  Sender: FDA-Public Use
  Company Number: NL-PURDUE-GBR_2007_0003489

PATIENT
  Age: 98 Year
  Sex: Female

DRUGS (2)
  1. OXYCONTIN [Suspect]
     Indication: PAIN
     Dosage: 5 MG, BID
     Route: 065
     Dates: start: 20030130
  2. LACTULOSE [Concomitant]
     Indication: CONSTIPATION
     Dosage: 15 MG, BID
     Route: 065

REACTIONS (2)
  - CEREBROVASCULAR ACCIDENT [None]
  - COMA [None]
